FAERS Safety Report 7446556-6 (Version None)
Quarter: 2011Q2

REPORT INFORMATION
  Report Type: 
  Country: None (occurrence: None)
  Receive Date: 20110429
  Receipt Date: 20110419
  Transmission Date: 20111010
  Serious: Yes (Other)
  Sender: FDA-Public Use
  Company Number: CH-MERCK-1104USA02803

PATIENT
  Age: 78 Year
  Sex: Female
  Weight: 60 kg

DRUGS (5)
  1. JANUMET [Suspect]
     Indication: DIABETES MELLITUS
     Route: 048
     Dates: start: 20110331, end: 20110409
  2. JANUMET [Suspect]
     Route: 048
     Dates: start: 20110401
  3. DIAMICRON [Concomitant]
     Indication: DIABETES MELLITUS
     Route: 065
  4. METFORMIN [Concomitant]
     Indication: DIABETES MELLITUS
     Route: 065
  5. DIOVAN [Concomitant]
     Route: 065
     Dates: start: 20090401

REACTIONS (6)
  - ARTHRALGIA [None]
  - DIARRHOEA [None]
  - MYALGIA [None]
  - INAPPROPRIATE SCHEDULE OF DRUG ADMINISTRATION [None]
  - ABDOMINAL PAIN UPPER [None]
  - NAUSEA [None]
